FAERS Safety Report 21350996 (Version 2)
Quarter: 2022Q3

REPORT INFORMATION
  Report Type: Spontaneous
  Country: JP (occurrence: JP)
  Receive Date: 20220919
  Receipt Date: 20220927
  Transmission Date: 20221027
  Serious: Yes (Death, Other)
  Sender: FDA-Public Use
  Company Number: JP-OTSUKA-2022_045275

PATIENT
  Age: 8 Decade
  Sex: Female

DRUGS (4)
  1. TOLVAPTAN [Suspect]
     Active Substance: TOLVAPTAN
     Indication: Cardiac failure chronic
     Dosage: 16 MG/DAY
     Route: 041
     Dates: start: 20220829, end: 20220906
  2. TOLVAPTAN [Suspect]
     Active Substance: TOLVAPTAN
     Dosage: 8 MG/DAY
     Route: 041
     Dates: start: 20220825, end: 20220828
  3. FUROSEMIDE [Concomitant]
     Active Substance: FUROSEMIDE
     Indication: Product used for unknown indication
     Dosage: 480 MG/DAY
     Route: 051
     Dates: end: 20220906
  4. AZOSEMIDE [Concomitant]
     Active Substance: AZOSEMIDE
     Indication: Product used for unknown indication
     Dosage: UNK
     Route: 065

REACTIONS (1)
  - Cardiac failure chronic [Fatal]

NARRATIVE: CASE EVENT DATE: 20220906
